FAERS Safety Report 8160619-1 (Version None)
Quarter: 2012Q1

REPORT INFORMATION
  Report Type: 
  Country: None (occurrence: None)
  Receive Date: 20120223
  Receipt Date: 20120213
  Transmission Date: 20120608
  Serious: Yes (Hospitalization)
  Sender: FDA-Public Use
  Company Number: JP-ROCHE-1036339

PATIENT
  Sex: Female
  Weight: 47 kg

DRUGS (5)
  1. LUCENTIS [Suspect]
     Dosage: LEFT EYE
     Route: 050
     Dates: start: 20120106
  2. LUCENTIS [Suspect]
     Dosage: RIGHT EYE
     Route: 050
     Dates: start: 20120113, end: 20120113
  3. LUCENTIS [Suspect]
     Indication: AGE-RELATED MACULAR DEGENERATION
     Dosage: LEFT EYE
     Route: 050
     Dates: start: 20111206
  4. LEVOFLOXACIN [Concomitant]
     Dates: start: 20111201, end: 20120101
  5. VISUDYNE [Concomitant]
     Indication: AGE-RELATED MACULAR DEGENERATION
     Route: 042
     Dates: start: 20070901

REACTIONS (2)
  - INAPPROPRIATE SCHEDULE OF DRUG ADMINISTRATION [None]
  - HYPONATRAEMIA [None]
